FAERS Safety Report 7607223-9 (Version None)
Quarter: 2011Q3

REPORT INFORMATION
  Report Type: 
  Country: None (occurrence: None)
  Receive Date: 20110713
  Receipt Date: 20110704
  Transmission Date: 20111222
  Serious: Yes (Other)
  Sender: FDA-Public Use
  Company Number: GR-JNJFOC-20110306235

PATIENT
  Sex: Male
  Weight: 80 kg

DRUGS (6)
  1. LOPRESSOR [Concomitant]
  2. DIGOXIN [Concomitant]
  3. STELARA [Suspect]
     Indication: PSORIASIS
     Route: 058
     Dates: start: 20100115, end: 20101201
  4. ALDACTONE [Concomitant]
  5. LASIX [Concomitant]
  6. T4 [Concomitant]

REACTIONS (1)
  - TUBERCULIN TEST POSITIVE [None]
